FAERS Safety Report 9189572 (Version 1)
Quarter: 2013Q1

REPORT INFORMATION
  Report Type: Spontaneous
  Country: US (occurrence: None)
  Receive Date: 20130322
  Receipt Date: 20130322
  Transmission Date: 20140127
  Serious: Yes (Hospitalization)
  Sender: FDA-Public Use
  Company Number: None

PATIENT
  Sex: Male
  Weight: 57.1 kg

DRUGS (1)
  1. CISPLATIN [Suspect]

REACTIONS (12)
  - Anxiety [None]
  - Pain [None]
  - Dyspnoea [None]
  - Pyrexia [None]
  - Heart rate increased [None]
  - Nutritional supplementation [None]
  - Constipation [None]
  - Blood pressure [None]
  - Blood pressure increased [None]
  - Respiratory rate increased [None]
  - White blood cell count decreased [None]
  - Neutropenia [None]
